FAERS Safety Report 12987987 (Version 1)
Quarter: 2016Q4

REPORT INFORMATION
  Report Type: Spontaneous
  Country: US (occurrence: US)
  Receive Date: 20161130
  Receipt Date: 20161130
  Transmission Date: 20170207
  Serious: Yes (Hospitalization)
  Sender: FDA-Public Use
  Company Number: US-SCIEGEN PHARMACEUTICALS INC-2016SCILIT00591

PATIENT
  Age: 70 Year
  Sex: Male

DRUGS (1)
  1. ATORVASTATIN CALCIUM. [Suspect]
     Active Substance: ATORVASTATIN CALCIUM
     Indication: PRODUCT USED FOR UNKNOWN INDICATION
     Dosage: 40 MG, QD
     Route: 065

REACTIONS (19)
  - Ocular icterus [Recovering/Resolving]
  - Renal tubular necrosis [Recovered/Resolved]
  - Antinuclear antibody positive [Unknown]
  - Blood urea increased [Unknown]
  - Blood bilirubin [Recovering/Resolving]
  - Smooth muscle antibody positive [Unknown]
  - Portal fibrosis [Unknown]
  - Aspartate aminotransferase increased [Recovered/Resolved]
  - Gamma-glutamyltransferase increased [Unknown]
  - Blood alkaline phosphatase increased [Recovering/Resolving]
  - Blood creatinine increased [Recovered/Resolved]
  - Tubulointerstitial nephritis [Recovered/Resolved]
  - Fatigue [Recovering/Resolving]
  - Weight decreased [Recovering/Resolving]
  - Portal tract inflammation [Unknown]
  - Antineutrophil cytoplasmic antibody positive [Unknown]
  - Blood immunoglobulin G increased [Unknown]
  - Drug-induced liver injury [Unknown]
  - Alanine aminotransferase increased [Recovered/Resolved]
